FAERS Safety Report 6599880-3 (Version None)
Quarter: 2010Q1

REPORT INFORMATION
  Report Type: 
  Country: None (occurrence: None)
  Receive Date: 20100217
  Receipt Date: 20100209
  Transmission Date: 20100710
  Serious: Yes (Hospitalization)
  Sender: FDA-Public Use
  Company Number: DSA_42590_2010

PATIENT
  Sex: Female

DRUGS (7)
  1. XENAZINE [Suspect]
     Indication: HUNTINGTON'S CHOREA
     Dosage: (12.5 MG TID ORAL)
     Route: 048
     Dates: start: 20090801, end: 20090901
  2. NEXIUM [Concomitant]
  3. PERCOCET [Concomitant]
  4. SYNTHROID [Concomitant]
  5. CLONIDINE [Concomitant]
  6. NAMENDA [Concomitant]
  7. ASPIRIN [Concomitant]

REACTIONS (2)
  - BLOOD PRESSURE INADEQUATELY CONTROLLED [None]
  - HAEMORRHAGIC STROKE [None]
